FAERS Safety Report 6888853-9 (Version None)
Quarter: 2010Q3

REPORT INFORMATION
  Report Type: 
  Country: None (occurrence: None)
  Receive Date: 20100730
  Receipt Date: 20071115
  Transmission Date: 20110219
  Serious: No
  Sender: FDA-Public Use
  Company Number: US-PFIZER INC-2007096731

PATIENT
  Sex: Male
  Weight: 85.73 kg

DRUGS (6)
  1. LIPITOR [Suspect]
     Indication: BLOOD CHOLESTEROL INCREASED
     Dates: start: 20060101, end: 20070408
  2. SYNTHROID [Concomitant]
  3. NEXIUM [Concomitant]
  4. GLUCOSAMINE [Concomitant]
  5. MULTI-VITAMINS [Concomitant]
  6. DIGESTIVES, INCL ENZYMES [Concomitant]

REACTIONS (2)
  - ALANINE AMINOTRANSFERASE INCREASED [None]
  - BLOOD CREATINE PHOSPHOKINASE INCREASED [None]
